FAERS Safety Report 24139099 (Version 1)
Quarter: 2024Q3

REPORT INFORMATION
  Report Type: Spontaneous
  Country: AU (occurrence: AU)
  Receive Date: 20240726
  Receipt Date: 20240726
  Transmission Date: 20241017
  Serious: Yes (Other)
  Sender: DR REDDYS
  Company Number: AU-BLG-LIT/AUS/24/0010481

PATIENT
  Age: 64 Year
  Sex: Male

DRUGS (3)
  1. LENALIDOMIDE [Suspect]
     Active Substance: LENALIDOMIDE
     Indication: Plasma cell myeloma
  2. LENALIDOMIDE [Suspect]
     Active Substance: LENALIDOMIDE
  3. CETIRIZINE [Suspect]
     Active Substance: CETIRIZINE HYDROCHLORIDE
     Indication: Premedication

REACTIONS (6)
  - Hypersensitivity pneumonitis [Unknown]
  - Rash macular [Unknown]
  - Lymphocytic infiltration [Unknown]
  - Type IV hypersensitivity reaction [Unknown]
  - Drug intolerance [Unknown]
  - Drug ineffective [Unknown]
